FAERS Safety Report 7874629-2 (Version None)
Quarter: 2011Q4

REPORT INFORMATION
  Report Type: 
  Country: None (occurrence: None)
  Receive Date: 20111031
  Receipt Date: 20111027
  Transmission Date: 20120403
  Serious: Yes (Other)
  Sender: FDA-Public Use
  Company Number: JP-PFIZER INC-2011263086

PATIENT
  Age: 89 Year
  Sex: Female

DRUGS (5)
  1. LASIX [Concomitant]
     Dosage: UNK
  2. LIPITOR [Suspect]
     Dosage: UNK
  3. ALDACTONE [Suspect]
     Indication: OEDEMA PERIPHERAL
     Dosage: UNK
     Dates: start: 20110701
  4. CANDESARTAN CILEXETIL [Concomitant]
     Dosage: UNK
  5. DEPAS [Concomitant]
     Dosage: UNK

REACTIONS (5)
  - GAIT DISTURBANCE [None]
  - DECREASED APPETITE [None]
  - DROOLING [None]
  - OEDEMA PERIPHERAL [None]
  - NASAL CONGESTION [None]
